FAERS Safety Report 7001800-4 (Version None)
Quarter: 2010Q3

REPORT INFORMATION
  Report Type: 
  Country: None (occurrence: None)
  Receive Date: 20100920
  Receipt Date: 20070530
  Transmission Date: 20110219
  Serious: Yes (Other)
  Sender: FDA-Public Use
  Company Number: US-ASTRAZENECA-2006UW22410

PATIENT
  Sex: Female
  Weight: 116.1 kg

DRUGS (10)
  1. SEROQUEL [Suspect]
     Indication: DEPRESSION
     Route: 048
     Dates: start: 20060101
  2. SEROQUEL [Suspect]
     Route: 048
     Dates: start: 20070316
  3. FUROSEMIDE [Concomitant]
     Route: 048
     Dates: start: 20070102
  4. FLUOXETINE HCL [Concomitant]
     Route: 048
     Dates: start: 20061114
  5. SIMVASTATIN [Concomitant]
     Route: 048
     Dates: start: 20061114
  6. AMBIEN CR [Concomitant]
     Route: 048
     Dates: start: 20061218
  7. GLIMEPIRIDE [Concomitant]
     Route: 048
     Dates: start: 20070102
  8. SYNTHROID [Concomitant]
     Route: 048
     Dates: start: 20070102
  9. PREVACID [Concomitant]
     Route: 048
     Dates: start: 20070305
  10. CLONAZEPAM [Concomitant]
     Route: 048
     Dates: start: 20061218

REACTIONS (4)
  - DIABETES MELLITUS [None]
  - DIABETES MELLITUS INADEQUATE CONTROL [None]
  - GLUCOSE TOLERANCE IMPAIRED [None]
  - WEIGHT INCREASED [None]
